FAERS Safety Report 5444139-0 (Version None)
Quarter: 2007Q3

REPORT INFORMATION
  Report Type: 
  Country: None (occurrence: None)
  Receive Date: 20070904
  Receipt Date: 20070817
  Transmission Date: 20080115
  Serious: Yes (Hospitalization)
  Sender: FDA-Public Use
  Company Number: 2007001526

PATIENT
  Age: 81 Year
  Sex: Male
  Weight: 64.5 kg

DRUGS (13)
  1. ERLOTINIB TABLET) [Suspect]
     Indication: NON-SMALL CELL LUNG CANCER
     Dosage: 150 MG, ORAL
     Route: 048
     Dates: start: 20070726
  2. BEVACIZUMAB (INJECTION FOR INFUSION) [Suspect]
     Indication: NON-SMALL CELL LUNG CANCER
     Dosage: 15 MG/KG (Q3W), INTRAVENOUS
     Route: 042
     Dates: start: 20070726
  3. PEMETREXED (PEMETREXED) [Concomitant]
     Indication: NON-SMALL CELL LUNG CANCER
     Dosage: 910 MG (Q3W)
     Dates: start: 20070726
  4. INDAPAMIDE [Concomitant]
  5. LISINOPRIL [Concomitant]
  6. TERAZOSIN HCL [Concomitant]
  7. POTASSIUM CHLORIDE [Concomitant]
  8. VITAMIN B12 [Concomitant]
  9. FOLIC ACID [Concomitant]
  10. DEXAMETHASONE TAB [Concomitant]
  11. COMPAZINE [Concomitant]
  12. MEGACE [Concomitant]
  13. PPROSCAR (FINASTERIDE) [Concomitant]

REACTIONS (15)
  - ANOREXIA [None]
  - ASTHENIA [None]
  - BLOOD CALCIUM DECREASED [None]
  - BLOOD CHLORIDE INCREASED [None]
  - BLOOD CREATININE INCREASED [None]
  - BLOOD UREA INCREASED [None]
  - DEHYDRATION [None]
  - FATIGUE [None]
  - HYPERNATRAEMIA [None]
  - HYPOKALAEMIA [None]
  - NEUTROPHIL COUNT INCREASED [None]
  - ORAL INTAKE REDUCED [None]
  - PLATELET COUNT DECREASED [None]
  - RED BLOOD CELL COUNT DECREASED [None]
  - WEIGHT DECREASED [None]
